FAERS Safety Report 6675427-8 (Version None)
Quarter: 2010Q2

REPORT INFORMATION
  Report Type: 
  Country: None (occurrence: None)
  Receive Date: 20100409
  Receipt Date: 20100406
  Transmission Date: 20101027
  Serious: Yes (Death, Other)
  Sender: FDA-Public Use
  Company Number: US-CELGENEUS-163-20785-10040365

PATIENT
  Sex: Male

DRUGS (3)
  1. THALOMID [Suspect]
     Indication: MULTIPLE MYELOMA
     Route: 048
     Dates: start: 20100301
  2. THALOMID [Suspect]
     Dosage: 100-200MG
     Route: 048
     Dates: start: 20080501
  3. THALOMID [Suspect]
     Dosage: 100-200MG
     Route: 048
     Dates: start: 20070601

REACTIONS (4)
  - DEATH [None]
  - MULTI-ORGAN FAILURE [None]
  - PLEURISY [None]
  - PNEUMONIA [None]
